FAERS Safety Report 5706708-X (Version None)
Quarter: 2008Q2

REPORT INFORMATION
  Report Type: 
  Country: None (occurrence: None)
  Receive Date: 20080416
  Receipt Date: 20080403
  Transmission Date: 20081010
  Serious: Yes (Other)
  Sender: FDA-Public Use
  Company Number: BR-BAYER-200813011LA

PATIENT
  Age: 27 Year
  Sex: Male
  Weight: 70 kg

DRUGS (2)
  1. LEVITRA [Suspect]
     Indication: ERECTILE DYSFUNCTION
     Route: 048
     Dates: start: 20080330, end: 20080330
  2. LEVITRA [Suspect]
     Route: 048
     Dates: start: 20080401, end: 20080401

REACTIONS (1)
  - URETHRAL HAEMORRHAGE [None]
